FAERS Safety Report 7402859-2 (Version None)
Quarter: 2011Q2

REPORT INFORMATION
  Report Type: 
  Country: None (occurrence: None)
  Receive Date: 20110408
  Receipt Date: 20110329
  Transmission Date: 20111010
  Serious: Yes (Hospitalization, Other)
  Sender: FDA-Public Use
  Company Number: US-AMGEN-USASP2011016902

PATIENT
  Age: 47 Year
  Sex: Male

DRUGS (2)
  1. ENBREL [Suspect]
     Indication: PSORIATIC ARTHROPATHY
     Dosage: 50 MG, 2 TIMES/WK
     Dates: start: 20041025
  2. ENBREL [Suspect]
     Indication: PSORIASIS

REACTIONS (7)
  - FALL [None]
  - PSORIASIS [None]
  - PSORIATIC ARTHROPATHY [None]
  - HEADACHE [None]
  - BACK INJURY [None]
  - NASOPHARYNGITIS [None]
  - SURGERY [None]
